FAERS Safety Report 5349497-3 (Version None)
Quarter: 2007Q2

REPORT INFORMATION
  Report Type: 
  Country: None (occurrence: None)
  Receive Date: 20070607
  Receipt Date: 20070601
  Transmission Date: 20071010
  Serious: Yes (Death, Other)
  Sender: FDA-Public Use
  Company Number: US-ELI_LILLY_AND_COMPANY-US200706000284

PATIENT
  Age: 71 Year
  Sex: Female

DRUGS (3)
  1. XIGRIS [Suspect]
     Indication: SEPSIS
     Dosage: UNK, UNK
     Route: 042
     Dates: start: 20070526, end: 20070527
  2. VANCOMYCIN HCL [Concomitant]
     Indication: CLOSTRIDIUM DIFFICILE COLITIS
     Dosage: 250 UNK, 4/D
     Route: 048
     Dates: start: 20070526, end: 20070527
  3. LEVOPHED [Concomitant]
     Dosage: 30 UNK, UNK
     Route: 042
     Dates: start: 20070526, end: 20070527

REACTIONS (3)
  - DEATH [None]
  - HAEMOPTYSIS [None]
  - HYPOTENSION [None]
